FAERS Safety Report 13539016 (Version 2)
Quarter: 2017Q3

REPORT INFORMATION
  Report Type: Spontaneous
  Country: IT (occurrence: IT)
  Receive Date: 20170512
  Receipt Date: 20170808
  Transmission Date: 20171127
  Serious: Yes (Other)
  Sender: FDA-Public Use
  Company Number: IT-AUROBINDO-AUR-APL-2017-33956

PATIENT
  Age: 78 Year
  Sex: Female

DRUGS (1)
  1. QUETIAPINE FILM-COATED TABLET [Suspect]
     Active Substance: QUETIAPINE
     Indication: PRODUCT USED FOR UNKNOWN INDICATION
     Dosage: 100 MG, DAILY
     Route: 048

REACTIONS (2)
  - Angioedema [Unknown]
  - Urticaria [Unknown]

NARRATIVE: CASE EVENT DATE: 20161219
